FAERS Safety Report 9432935 (Version 2)
Quarter: 2013Q3

REPORT INFORMATION
  Report Type: Report from Study
  Country: US (occurrence: US)
  Receive Date: 20130731
  Receipt Date: 20130930
  Transmission Date: 20140515
  Serious: Yes (Death, Hospitalization)
  Sender: FDA-Public Use
  Company Number: US-ACTELION-A-NJ2013-86461

PATIENT
  Age: 73 Year
  Sex: Male

DRUGS (1)
  1. TRACLEER [Suspect]
     Indication: PULMONARY ARTERIAL HYPERTENSION
     Dosage: UNK
     Route: 048
     Dates: start: 20080211, end: 20130811

REACTIONS (5)
  - Death [Fatal]
  - Renal failure [Unknown]
  - Atrial fibrillation [Not Recovered/Not Resolved]
  - Dialysis [Not Recovered/Not Resolved]
  - Fluid retention [Not Recovered/Not Resolved]
